FAERS Safety Report 14730601 (Version 1)
Quarter: 2018Q2

REPORT INFORMATION
  Report Type: Report from Study
  Country: US (occurrence: US)
  Receive Date: 20180406
  Receipt Date: 20180406
  Transmission Date: 20180711
  Serious: No
  Sender: FDA-Public Use
  Company Number: PHEH2018US013051

PATIENT
  Sex: Female

DRUGS (1)
  1. COSENTYX [Suspect]
     Active Substance: SECUKINUMAB
     Indication: PRODUCT USED FOR UNKNOWN INDICATION
     Dosage: 300 MG, QMO, COSENTYX SENSOREADY PEN 150 MG/ML X2
     Route: 065
     Dates: start: 201709

REACTIONS (2)
  - Device malfunction [Unknown]
  - Incorrect dose administered [Unknown]
